FAERS Safety Report 8703373 (Version 4)
Quarter: 2013Q2

REPORT INFORMATION
  Report Type: Spontaneous
  Country: DE (occurrence: None)
  Receive Date: 20120719
  Receipt Date: 20130501
  Transmission Date: 20140414
  Serious: Yes (Disabling)
  Sender: FDA-Public Use
  Company Number: 2012-3121

PATIENT
  Age: 10 Year
  Sex: Female
  Weight: 24 kg

DRUGS (5)
  1. INCRELEX [Suspect]
     Indication: BLOOD GROWTH HORMONE ABNORMAL
     Dosage: 240 UG/KG (120 UG/KG,2 IN 1 D),SUBCUTANEOUS
     Route: 058
     Dates: start: 20100518, end: 20120704
  2. INCRELEX [Suspect]
     Indication: FAILURE TO THRIVE
     Dosage: 240 UG/KG (120 UG/KG,2 IN 1 D),SUBCUTANEOUS
     Route: 058
     Dates: start: 20100518, end: 20120704
  3. BACTRIM [Concomitant]
  4. UNSPECIFIED DIABETES MEDICATION (ALL OTHER THERAPEUTIC PRODUCTS) [Concomitant]
  5. OXYGEN (OXYGEN) [Concomitant]

REACTIONS (2)
  - OVARIAN ENLARGEMENT [None]
  - HEADACHE [None]
